FAERS Safety Report 5393416-0 (Version None)
Quarter: 2007Q3

REPORT INFORMATION
  Report Type: 
  Country: None (occurrence: None)
  Receive Date: 20070720
  Receipt Date: 20070720
  Transmission Date: 20080115
  Serious: No
  Sender: FDA-Public Use
  Company Number: None

PATIENT
  Age: 82 Year
  Sex: Female
  Weight: 65.7716 kg

DRUGS (3)
  1. CARDIZEM [Suspect]
     Indication: BLOOD PRESSURE
     Dosage: 60MG Q6H PO
     Route: 048
     Dates: start: 20070615, end: 20070703
  2. CARDIZEM [Suspect]
     Indication: HYPERTENSION
     Dosage: 60MG Q6H PO
     Route: 048
     Dates: start: 20070615, end: 20070703
  3. ASPIRIN [Concomitant]

REACTIONS (2)
  - PHARMACEUTICAL PRODUCT COMPLAINT [None]
  - POOR QUALITY SLEEP [None]
